FAERS Safety Report 10724961 (Version 1)
Quarter: 2015Q1

REPORT INFORMATION
  Report Type: Spontaneous
  Country: GR (occurrence: GR)
  Receive Date: 20150120
  Receipt Date: 20150120
  Transmission Date: 20150721
  Serious: Yes (Life-Threatening)
  Sender: FDA-Public Use
  Company Number: GR-SA-2014SA173901

PATIENT
  Age: 67 Year
  Sex: Female
  Weight: 64 kg

DRUGS (10)
  1. CAMPTO [Concomitant]
     Active Substance: IRINOTECAN
     Indication: COLORECTAL CANCER
     Dates: start: 20141029, end: 20141029
  2. NEUROBION [Concomitant]
     Active Substance: CYANOCOBALAMIN\PYRIDOXINE\THIAMINE
     Indication: NEUROPATHY PERIPHERAL
  3. XELODA [Concomitant]
     Active Substance: CAPECITABINE
     Indication: COLORECTAL CANCER
     Dates: start: 20141029
  4. ZALTRAP [Suspect]
     Active Substance: ZIV-AFLIBERCEPT
     Indication: COLORECTAL CANCER
     Route: 042
     Dates: start: 20141029, end: 20141029
  5. XELODA [Concomitant]
     Active Substance: CAPECITABINE
     Indication: COLORECTAL CANCER
     Dates: start: 20141111, end: 20141118
  6. APROVEL [Concomitant]
     Active Substance: IRBESARTAN
     Indication: PRODUCT USED FOR UNKNOWN INDICATION
     Dosage: NOT CONSTANTLY
  7. ZALTRAP [Suspect]
     Active Substance: ZIV-AFLIBERCEPT
     Indication: COLORECTAL CANCER
     Route: 042
     Dates: start: 20141111, end: 20141111
  8. LYRICA [Concomitant]
     Active Substance: PREGABALIN
     Indication: PRODUCT USED FOR UNKNOWN INDICATION
  9. VITAMIN D [Concomitant]
     Active Substance: CHOLECALCIFEROL
     Indication: NEUROPATHY PERIPHERAL
  10. CAMPTO [Concomitant]
     Active Substance: IRINOTECAN
     Indication: COLORECTAL CANCER
     Dates: start: 20141111, end: 20141111

REACTIONS (1)
  - Electrolyte imbalance [Unknown]

NARRATIVE: CASE EVENT DATE: 20141124
